FAERS Safety Report 16235180 (Version 2)
Quarter: 2019Q2

REPORT INFORMATION
  Report Type: Spontaneous
  Country: JP (occurrence: JP)
  Receive Date: 20190424
  Receipt Date: 20190618
  Transmission Date: 20190711
  Serious: Yes (Hospitalization)
  Sender: FDA-Public Use
  Company Number: PHJP2019JP004767

PATIENT
  Age: 60 Year
  Sex: Male

DRUGS (6)
  1. LEVOCARNITINE HYDROCHLORIDE [Concomitant]
     Active Substance: LEVOCARNITINE HYDROCHLORIDE
     Indication: PRODUCT USED FOR UNKNOWN INDICATION
     Dosage: 900 MG, UNK
     Route: 065
  2. VALPROATE SODIUM. [Suspect]
     Active Substance: VALPROATE SODIUM
     Indication: PRODUCT USED FOR UNKNOWN INDICATION
     Dosage: 1200 MG, QD
     Route: 048
  3. PHENOBARBITAL. [Suspect]
     Active Substance: PHENOBARBITAL
     Indication: PRODUCT USED FOR UNKNOWN INDICATION
     Dosage: 60 MG, QD
     Route: 048
  4. CLONAZEPAM. [Concomitant]
     Active Substance: CLONAZEPAM
     Indication: PRODUCT USED FOR UNKNOWN INDICATION
     Dosage: 1 MG, UNK
     Route: 065
  5. URSODEOXYCHOLIC ACID [Concomitant]
     Active Substance: URSODIOL
     Indication: CHRONIC HEPATITIS C
     Dosage: UNK
     Route: 065
  6. TEGRETOL [Suspect]
     Active Substance: CARBAMAZEPINE
     Indication: PRODUCT USED FOR UNKNOWN INDICATION
     Dosage: 700 MG, QD
     Route: 048

REACTIONS (3)
  - Hyperammonaemic encephalopathy [Recovering/Resolving]
  - Obesity [Unknown]
  - Focal dyscognitive seizures [Recovered/Resolved]
